FAERS Safety Report 5319811-3 (Version None)
Quarter: 2007Q2

REPORT INFORMATION
  Report Type: 
  Country: None (occurrence: None)
  Receive Date: 20070509
  Receipt Date: 20070425
  Transmission Date: 20071010
  Serious: Yes (Other)
  Sender: FDA-Public Use
  Company Number: PHEH2007US05477

PATIENT
  Age: 64 Year
  Sex: Female

DRUGS (1)
  1. ZELNORM [Suspect]
     Indication: IRRITABLE BOWEL SYNDROME
     Dosage: 6 MG, BID
     Route: 048
     Dates: start: 20040101, end: 20070407

REACTIONS (4)
  - DIZZINESS [None]
  - FACIAL PALSY [None]
  - HYPERTENSION [None]
  - PALPITATIONS [None]
